FAERS Safety Report 24529733 (Version 2)
Quarter: 2024Q4

REPORT INFORMATION
  Report Type: Report from Study
  Country: GB (occurrence: GB)
  Receive Date: 20241021
  Receipt Date: 20241120
  Transmission Date: 20250115
  Serious: Yes (Hospitalization, Other)
  Sender: GLAXOSMITHKLINE
  Company Number: GB-GSK-GB2024GSK126564

PATIENT

DRUGS (11)
  1. BELIMUMAB [Suspect]
     Active Substance: BELIMUMAB
     Indication: Systemic lupus erythematosus
     Dosage: 680 MG, MO
     Dates: start: 20211130
  2. BELIMUMAB [Suspect]
     Active Substance: BELIMUMAB
     Dosage: 600 MG, MO
     Dates: start: 20220714
  3. MYCOPHENOLATE MOFETIL [Concomitant]
     Active Substance: MYCOPHENOLATE MOFETIL
     Indication: Product used for unknown indication
     Dosage: 500 MG, BID
  4. HYDROXYCHLOROQUINE [Concomitant]
     Active Substance: HYDROXYCHLOROQUINE
     Indication: Product used for unknown indication
     Dosage: 200 MG, BID
  5. Cetraben [Concomitant]
     Indication: Product used for unknown indication
     Dosage: UNK, PRN
     Route: 061
     Dates: start: 20220118
  6. BECLOMETHASONE DIPROPIONATE [Concomitant]
     Active Substance: BECLOMETHASONE DIPROPIONATE
     Indication: Product used for unknown indication
     Dosage: 100 MCG/INH PRESSURISED
     Route: 055
  7. KETOCONAZOLE [Concomitant]
     Active Substance: KETOCONAZOLE
     Indication: Product used for unknown indication
     Dosage: 2 %
     Route: 061
  8. FERROUS FUMARATE [Concomitant]
     Active Substance: FERROUS FUMARATE
     Indication: Iron deficiency
  9. ALBUTEROL [Concomitant]
     Active Substance: ALBUTEROL
     Dosage: UNK, PRN
     Route: 055
  10. ACETAMINOPHEN [Concomitant]
     Active Substance: ACETAMINOPHEN
     Dosage: 1 G
  11. DERMOL [Concomitant]
     Active Substance: BENZALKONIUM CHLORIDE\CHLORHEXIDINE HYDROCHLORIDE\ISOPROPYL MYRISTATE\PARAFFIN
     Dosage: UNK

REACTIONS (3)
  - Metastatic neoplasm [Recovered/Resolved]
  - COVID-19 [Recovered/Resolved]
  - Myositis [Recovered/Resolved]

NARRATIVE: CASE EVENT DATE: 20230102
